FAERS Safety Report 8073027-9 (Version None)
Quarter: 2011Q4

REPORT INFORMATION
  Report Type: 
  Country: None (occurrence: None)
  Receive Date: 20111221
  Receipt Date: 20110321
  Transmission Date: 20120403
  Serious: Yes (Other)
  Sender: FDA-Public Use
  Company Number: PHHY2009US66430

PATIENT
  Age: 67 Year
  Sex: Female

DRUGS (7)
  1. EXJADE [Suspect]
     Indication: IRON OVERLOAD
     Dosage: 1000 MG ,ORAL ; 1000 MG, QD, ORAL ; 500 MG, ORAL
     Route: 048
     Dates: start: 20090114
  2. EXJADE [Suspect]
     Indication: IRON OVERLOAD
     Dosage: 1000 MG ,ORAL ; 1000 MG, QD, ORAL ; 500 MG, ORAL
     Route: 048
     Dates: start: 20081001
  3. EXJADE [Suspect]
     Indication: IRON OVERLOAD
     Dosage: 1000 MG ,ORAL ; 1000 MG, QD, ORAL ; 500 MG, ORAL
     Route: 048
     Dates: end: 20101208
  4. ACYCLOVIR [Concomitant]
  5. LEVOTHYROXINE SODIUM [Concomitant]
  6. VITAMIN B12 [Concomitant]
  7. VITAMIN D [Concomitant]

REACTIONS (3)
  - NAUSEA [None]
  - SERUM FERRITIN INCREASED [None]
  - DIARRHOEA [None]
